FAERS Safety Report 9478014 (Version 2)
Quarter: 2013Q3

REPORT INFORMATION
  Report Type: Spontaneous
  Country: US (occurrence: None)
  Receive Date: 20130822
  Receipt Date: 20130912
  Transmission Date: 20140515
  Serious: Yes (Other)
  Sender: FDA-Public Use
  Company Number: JPI-P-034460

PATIENT
  Age: 42 Year
  Sex: Female
  Weight: 40.9 kg

DRUGS (3)
  1. XYREM (SODIUM OXYBATE) ORAL SOLUTION, 500MG/ML [Suspect]
     Indication: HYPERSOMNIA
     Route: 048
     Dates: start: 20130802, end: 20130803
  2. MILNACIPRAN [Concomitant]
  3. LEVOTHYROXINE [Concomitant]

REACTIONS (8)
  - Dry mouth [None]
  - Feeling jittery [None]
  - Hallucination, auditory [None]
  - Anxiety [None]
  - Snoring [None]
  - Depressed level of consciousness [None]
  - Somnolence [None]
  - Dizziness [None]
